FAERS Safety Report 24152662 (Version 1)
Quarter: 2024Q3

REPORT INFORMATION
  Report Type: Spontaneous
  Country: US (occurrence: US)
  Receive Date: 20240730
  Receipt Date: 20240730
  Transmission Date: 20241016
  Serious: Yes (Death, Other)
  Sender: DR REDDYS
  Company Number: US-DRL-USA-LIT/USA/24/0010854

PATIENT
  Age: 16 Year
  Sex: Male

DRUGS (13)
  1. SIROLIMUS [Suspect]
     Active Substance: SIROLIMUS
     Indication: Cerebral microangiopathy
  2. SIROLIMUS [Suspect]
     Active Substance: SIROLIMUS
     Indication: Retinal microangiopathy
  3. SIROLIMUS [Suspect]
     Active Substance: SIROLIMUS
     Indication: Calcium metabolism disorder
  4. SIROLIMUS [Suspect]
     Active Substance: SIROLIMUS
     Indication: Cyst
  5. BEVACIZUMAB [Concomitant]
     Active Substance: BEVACIZUMAB
     Indication: Cerebral microangiopathy
     Dosage: (5 MG/KG IV OVER 60 TO 90 MINUTES, EVERY 2 WEEKS)
     Route: 042
  6. BEVACIZUMAB [Concomitant]
     Active Substance: BEVACIZUMAB
     Indication: Retinal microangiopathy
  7. BEVACIZUMAB [Concomitant]
     Active Substance: BEVACIZUMAB
     Indication: Calcium metabolism disorder
  8. BEVACIZUMAB [Concomitant]
     Active Substance: BEVACIZUMAB
     Indication: Cyst
  9. CLOBAZAM [Concomitant]
     Active Substance: CLOBAZAM
     Indication: Generalised tonic-clonic seizure
  10. OCTREOTIDE [Concomitant]
     Active Substance: OCTREOTIDE\OCTREOTIDE ACETATE
     Indication: Cerebral microangiopathy
  11. OCTREOTIDE [Concomitant]
     Active Substance: OCTREOTIDE\OCTREOTIDE ACETATE
     Indication: Retinal microangiopathy
  12. OCTREOTIDE [Concomitant]
     Active Substance: OCTREOTIDE\OCTREOTIDE ACETATE
     Indication: Calcium metabolism disorder
  13. OCTREOTIDE [Concomitant]
     Active Substance: OCTREOTIDE\OCTREOTIDE ACETATE
     Indication: Cyst

REACTIONS (3)
  - Condition aggravated [Fatal]
  - Gastrointestinal haemorrhage [Fatal]
  - Product use in unapproved indication [Unknown]
